FAERS Safety Report 13629874 (Version 3)
Quarter: 2017Q3

REPORT INFORMATION
  Report Type: Spontaneous
  Country: US (occurrence: US)
  Receive Date: 20170608
  Receipt Date: 20170718
  Transmission Date: 20171127
  Serious: Yes (Hospitalization, Other)
  Sender: FDA-Public Use
  Company Number: US-JNJFOC-20170529311

PATIENT

DRUGS (2)
  1. TYLENOL [Suspect]
     Active Substance: ACETAMINOPHEN
     Indication: PRODUCT USED FOR UNKNOWN INDICATION
     Dosage: MOTHERS DOSING: 2 TABLETS, THREE TIMES DAILY
     Route: 063
  2. DOCUSATE [Concomitant]
     Active Substance: DOCUSATE
     Indication: PRODUCT USED FOR UNKNOWN INDICATION
     Dosage: MOTHERS DOSING: 1 CAPSULE TWO TIMES DAILY.
     Route: 063

REACTIONS (6)
  - Slow response to stimuli [Recovered/Resolved]
  - Bradypnoea [Recovered/Resolved]
  - Lethargy [Recovered/Resolved]
  - Exposure during breast feeding [Unknown]
  - Oxygen saturation decreased [Recovered/Resolved]
  - Poor feeding infant [Recovered/Resolved]
